FAERS Safety Report 5456417-X (Version None)
Quarter: 2007Q3

REPORT INFORMATION
  Report Type: 
  Country: None (occurrence: None)
  Receive Date: 20070918
  Receipt Date: 20070913
  Transmission Date: 20080115
  Serious: Yes (Other)
  Sender: FDA-Public Use
  Company Number: US-ELI_LILLY_AND_COMPANY-US200708000550

PATIENT
  Age: 55 Year
  Sex: Male

DRUGS (1)
  1. XIGRIS [Suspect]
     Indication: SEPSIS
     Dosage: UNK, UNK
     Route: 042
     Dates: start: 20070701, end: 20070701

REACTIONS (2)
  - DEPOSIT EYE [None]
  - MYDRIASIS [None]
